FAERS Safety Report 26031790 (Version 1)
Quarter: 2025Q4

REPORT INFORMATION
  Report Type: Spontaneous
  Country: US (occurrence: US)
  Receive Date: 20251112
  Receipt Date: 20251112
  Transmission Date: 20260118
  Serious: Yes (Other)
  Sender: JOHNSON AND JOHNSON
  Company Number: US-JNJFOC-20251141844

PATIENT
  Age: 18 Year
  Sex: Female

DRUGS (1)
  1. DARATUMUMAB [Suspect]
     Active Substance: DARATUMUMAB
     Indication: Salvage therapy
     Dosage: RECEIVED THREE DOSES ON DAYS 0, 7 AND 21
     Route: 065

REACTIONS (5)
  - Neutropenia [Recovered/Resolved]
  - Hypogammaglobulinaemia [Unknown]
  - Device related sepsis [Unknown]
  - Pneumonia staphylococcal [Unknown]
  - Off label use [Unknown]
